FAERS Safety Report 9277169 (Version 1)
Quarter: 2013Q2

REPORT INFORMATION
  Report Type: Spontaneous
  Country: TR (occurrence: TR)
  Receive Date: 20130508
  Receipt Date: 20130508
  Transmission Date: 20140414
  Serious: Yes (Other)
  Sender: FDA-Public Use
  Company Number: TR-AMGEN-TURSP2013031785

PATIENT
  Age: 67 Year
  Sex: Female
  Weight: 160 kg

DRUGS (2)
  1. ENBREL [Suspect]
     Indication: RHEUMATOID ARTHRITIS
     Dosage: 50 MG, WEEKLY
     Route: 058
     Dates: start: 20121015, end: 20130415
  2. METHOTREXATE SODIUM [Suspect]
     Dosage: 15 MG, WEEKLY
     Route: 048

REACTIONS (1)
  - Toxic skin eruption [Recovering/Resolving]
